FAERS Safety Report 12852004 (Version 1)
Quarter: 2016Q4

REPORT INFORMATION
  Report Type: Spontaneous
  Country: US (occurrence: US)
  Receive Date: 20161014
  Receipt Date: 20161014
  Transmission Date: 20170207
  Serious: Yes (Hospitalization)
  Sender: FDA-Public Use
  Company Number: None

PATIENT
  Age: 69 Year
  Sex: Male

DRUGS (1)
  1. MULTIHANCE [Suspect]
     Active Substance: GADOBENATE DIMEGLUMINE
     Dosage: ?          OTHER FREQUENCY:ONCE FOR PROCEDURE;?
     Route: 040

REACTIONS (4)
  - Cough [None]
  - Dyspnoea [None]
  - Tearfulness [None]
  - Throat irritation [None]

NARRATIVE: CASE EVENT DATE: 20161006
